FAERS Safety Report 24148882 (Version 1)
Quarter: 2024Q3

REPORT INFORMATION
  Report Type: Report from Study
  Country: TN (occurrence: TN)
  Receive Date: 20240729
  Receipt Date: 20240729
  Transmission Date: 20241017
  Serious: Yes (Hospitalization)
  Sender: ABBVIE
  Company Number: TN-ABBVIE-5853564

PATIENT
  Age: 16 Year
  Sex: Male

DRUGS (6)
  1. HUMIRA [Suspect]
     Active Substance: ADALIMUMAB
     Indication: Rheumatoid arthritis
     Dosage: 1 INJECTION?FORM STRENGTH: 40 MG
     Route: 058
     Dates: start: 20240324, end: 20240626
  2. HUMIRA [Suspect]
     Active Substance: ADALIMUMAB
     Indication: Crohn^s disease
     Dosage: 1 INJECTION?FORM STRENGTH: 40 MG
     Route: 058
     Dates: start: 20240724
  3. HUMIRA [Suspect]
     Active Substance: ADALIMUMAB
     Dosage: 1 INJECTION?FORM STRENGTH: 40 MG
     Route: 058
     Dates: start: 20231117, end: 20240317
  4. STEROGYL [Concomitant]
     Active Substance: ERGOCALCIFEROL
     Indication: Diarrhoea
     Dosage: 4 DROP
     Dates: start: 20240714
  5. Copred [Concomitant]
     Indication: Diarrhoea
     Dosage: 2.5 TABLET
     Route: 048
     Dates: start: 20240714
  6. Calperos [Concomitant]
     Indication: Diarrhoea
     Dosage: 2 TABLET?FORM STRENGTH: 500 MG
     Route: 048
     Dates: start: 20240714

REACTIONS (3)
  - Diarrhoea [Recovering/Resolving]
  - Crohn^s disease [Recovered/Resolved]
  - Therapeutic product effect incomplete [Unknown]

NARRATIVE: CASE EVENT DATE: 20240601
